FAERS Safety Report 12116468 (Version 5)
Quarter: 2016Q3

REPORT INFORMATION
  Report Type: Spontaneous
  Country: GB (occurrence: GB)
  Receive Date: 20160225
  Receipt Date: 20160915
  Transmission Date: 20161109
  Serious: Yes (Hospitalization, Other)
  Sender: FDA-Public Use
  Company Number: GB-BIOGEN-2015BI111807

PATIENT
  Age: 44 Year
  Sex: Male

DRUGS (1)
  1. TYSABRI [Suspect]
     Active Substance: NATALIZUMAB
     Indication: MULTIPLE SCLEROSIS
     Route: 042
     Dates: start: 201308, end: 20150709

REACTIONS (6)
  - Fall [Recovered/Resolved]
  - Ankle fracture [Unknown]
  - Progressive multifocal leukoencephalopathy [Recovered/Resolved with Sequelae]
  - Anxiety [Unknown]
  - Immune reconstitution inflammatory syndrome [Not Recovered/Not Resolved]
  - Memory impairment [Unknown]

NARRATIVE: CASE EVENT DATE: 2014
